FAERS Safety Report 9537518 (Version 1)
Quarter: 2013Q3

REPORT INFORMATION
  Report Type: Spontaneous
  Country: IT (occurrence: IT)
  Receive Date: 20130919
  Receipt Date: 20130919
  Transmission Date: 20140515
  Serious: Yes (Other)
  Sender: FDA-Public Use
  Company Number: IT-TEVA-431170ISR

PATIENT
  Age: 78 Year
  Sex: Female

DRUGS (8)
  1. ALPRAZOLAM [Suspect]
     Indication: ANXIETY
     Dosage: 1 MILLIGRAM DAILY;
     Route: 048
     Dates: start: 20130823, end: 20130823
  2. PRISMA 50MG [Concomitant]
  3. EXELON 9.5MG/24HOURS [Concomitant]
  4. LYRICA 75MG [Concomitant]
  5. TAREG 160MG [Concomitant]
  6. LANSOPRAZOLO [Concomitant]
  7. METFORMINA [Concomitant]
  8. ACIDO URSODESOSSICOLICO [Concomitant]

REACTIONS (4)
  - Craniocerebral injury [Recovering/Resolving]
  - Fall [Unknown]
  - Confusional state [Recovering/Resolving]
  - Hypoaesthesia [Unknown]
